FAERS Safety Report 18576965 (Version 1)
Quarter: 2020Q4

REPORT INFORMATION
  Report Type: Spontaneous
  Country: GR (occurrence: GR)
  Receive Date: 20201203
  Receipt Date: 20201203
  Transmission Date: 20210114
  Serious: Yes (Other)
  Sender: FDA-Public Use
  Company Number: GR-GALDERMA-GR2020050431

PATIENT
  Age: 28 Week
  Sex: Male

DRUGS (2)
  1. CEFUROXIME. [Concomitant]
     Active Substance: CEFUROXIME
     Indication: PREMATURE RUPTURE OF MEMBRANES
     Route: 064
  2. METRONIDAZOLE. [Suspect]
     Active Substance: METRONIDAZOLE
     Indication: PRODUCT USED FOR UNKNOWN INDICATION
     Route: 064

REACTIONS (2)
  - Premature baby [Recovered/Resolved]
  - Foetal exposure during pregnancy [Recovered/Resolved]
